FAERS Safety Report 6286777-1 (Version None)
Quarter: 2009Q3

REPORT INFORMATION
  Report Type: 
  Country: None (occurrence: None)
  Receive Date: 20090728
  Receipt Date: 20090717
  Transmission Date: 20100115
  Serious: Yes (Other)
  Sender: FDA-Public Use
  Company Number: FR-PFIZER INC-2009243156

PATIENT
  Age: 28 Year

DRUGS (2)
  1. CELEBREX [Suspect]
     Indication: BACK PAIN
     Dosage: UNK
     Dates: end: 20090401
  2. CELEBREX [Suspect]
     Indication: ANKYLOSING SPONDYLITIS

REACTIONS (1)
  - ABORTION SPONTANEOUS [None]
